FAERS Safety Report 21683681 (Version 1)
Quarter: 2022Q4

REPORT INFORMATION
  Report Type: Spontaneous
  Country: US (occurrence: None)
  Receive Date: 20221202
  Receipt Date: 20221202
  Transmission Date: 20230113
  Serious: Yes (Disabling)
  Sender: FDA-Public Use
  Company Number: None

PATIENT
  Age: 57 Year
  Sex: Male
  Weight: 72 kg

DRUGS (2)
  1. REPATHA [Suspect]
     Active Substance: EVOLOCUMAB
     Indication: Blood cholesterol increased
     Dates: start: 20220614, end: 20221019
  2. chinese herb [Concomitant]

REACTIONS (2)
  - Arthralgia [None]
  - Gait disturbance [None]

NARRATIVE: CASE EVENT DATE: 20221011
